FAERS Safety Report 6479846-4 (Version None)
Quarter: 2009Q4

REPORT INFORMATION
  Report Type: 
  Country: None (occurrence: None)
  Receive Date: 20091208
  Receipt Date: 20091202
  Transmission Date: 20100525
  Serious: Yes (Hospitalization)
  Sender: FDA-Public Use
  Company Number: BR-ROCHE-669867

PATIENT
  Sex: Male
  Weight: 75 kg

DRUGS (2)
  1. VALIUM [Suspect]
     Indication: ANXIETY
     Dosage: OTHER INDICATION: INSOMNIA, ROUTE: ORAL
     Route: 065
     Dates: start: 20091112
  2. VALIUM [Suspect]
     Dosage: ROUTE: NOT PROVIDED; TAKEN OVER 30 YEARS
     Route: 065

REACTIONS (7)
  - CRYING [None]
  - DRUG INEFFECTIVE [None]
  - HEADACHE [None]
  - INSOMNIA [None]
  - RADIUS FRACTURE [None]
  - ROAD TRAFFIC ACCIDENT [None]
  - SOMNOLENCE [None]
